FAERS Safety Report 5084415-7 (Version None)
Quarter: 2006Q3

REPORT INFORMATION
  Report Type: 
  Country: None (occurrence: None)
  Receive Date: 20060821
  Receipt Date: 20060719
  Transmission Date: 20061208
  Serious: Yes (Other)
  Sender: FDA-Public Use
  Company Number: 2006-07-0705

PATIENT
  Age: 55 Year
  Sex: Male
  Weight: 66.8 kg

DRUGS (12)
  1. AUGMENTIN [Suspect]
     Indication: COUGH
     Route: 065
     Dates: start: 20060501, end: 20060501
  2. PEG-INTRON [Suspect]
     Indication: HEPATITIS C
     Dosage: 120MCG WEEKLY
     Route: 058
     Dates: start: 20060519
  3. REBETOL [Suspect]
     Indication: HEPATITIS C
     Dosage: 1000MG PER DAY
     Route: 048
     Dates: start: 20060519
  4. HYZAAR [Concomitant]
     Route: 048
  5. LIBRIUM [Concomitant]
     Route: 048
  6. LOPID [Concomitant]
     Route: 048
  7. METOPROLOL TARTRATE [Concomitant]
     Route: 048
  8. MOTRIN IB [Concomitant]
     Route: 048
  9. NASONEX [Concomitant]
  10. ASPIRIN [Concomitant]
  11. ULTRAM [Concomitant]
     Route: 048
  12. ZANTAC [Concomitant]

REACTIONS (7)
  - ABDOMINAL PAIN [None]
  - DEHYDRATION [None]
  - DIARRHOEA [None]
  - DIZZINESS [None]
  - DIZZINESS POSTURAL [None]
  - LOSS OF CONSCIOUSNESS [None]
  - ORAL INTAKE REDUCED [None]
